FAERS Safety Report 7685770-1 (Version None)
Quarter: 2011Q3

REPORT INFORMATION
  Report Type: 
  Country: None (occurrence: None)
  Receive Date: 20110815
  Receipt Date: 20110815
  Transmission Date: 20111222
  Serious: Yes (Hospitalization)
  Sender: FDA-Public Use
  Company Number: None

PATIENT
  Age: 67 Year
  Sex: Male
  Weight: 63 kg

DRUGS (14)
  1. PROSCAR [Concomitant]
     Route: 048
  2. PRADAXA [Suspect]
     Indication: ATRIAL FIBRILLATION
     Dosage: 150 MG
     Route: 048
  3. MILK OF MAGNESIA 100 MG PER 5 ML [Concomitant]
     Route: 048
  4. ZOLOFT [Concomitant]
     Route: 048
  5. SENNA-GEN 8.6 MG [Concomitant]
     Route: 048
  6. CARDIZEM CD [Concomitant]
     Route: 048
  7. PROTONIX [Concomitant]
     Route: 048
  8. DILANTIN [Concomitant]
     Route: 048
  9. TRAZODONE HCL [Concomitant]
     Route: 048
  10. FERROUS SULFATE TAB [Concomitant]
     Route: 048
  11. DILANTIN [Concomitant]
     Route: 048
  12. PRADAXA [Concomitant]
     Route: 048
  13. REFRESH 0.5% [Concomitant]
     Route: 047
  14. PROCTOCORT 1% [Concomitant]
     Route: 061

REACTIONS (4)
  - FIBRIN D DIMER INCREASED [None]
  - ATRIAL THROMBOSIS [None]
  - PULMONARY EMBOLISM [None]
  - TREATMENT NONCOMPLIANCE [None]
